FAERS Safety Report 4747073-4 (Version None)
Quarter: 2005Q3

REPORT INFORMATION
  Report Type: 
  Country: None (occurrence: None)
  Receive Date: 20050815
  Receipt Date: 20050722
  Transmission Date: 20060218
  Serious: Yes (Death)
  Sender: FDA-Public Use
  Company Number: 11893

PATIENT
  Age: 12 Month
  Sex: Female

DRUGS (13)
  1. SULFAMETHOXAZOLE + TRIMETHOPRIM [Suspect]
     Dosage: 120 MG BID, PO
     Route: 048
     Dates: start: 20041221, end: 20041222
  2. SULFAMETHOXAZOLE + TRIMETHOPRIM [Suspect]
     Dosage: 120 MG BID, PO
     Route: 048
     Dates: start: 20041227, end: 20041229
  3. CYTARABINE [Suspect]
     Indication: ACUTE MYELOID LEUKAEMIA
     Dosage: 1100 MG, IV
     Route: 042
     Dates: start: 20051221, end: 20041225
  4. FLUDARABINE PHOSPHATE [Suspect]
     Indication: ACUTE MYELOID LEUKAEMIA
     Dosage: 17 MG  IV
     Route: 042
     Dates: start: 20041221, end: 20041225
  5. FLUCLOXACILLIN [Concomitant]
  6. GENTAMICIN [Concomitant]
  7. CODEINE [Concomitant]
  8. ALLOPURINOL [Concomitant]
  9. CEFTRIAXONE [Concomitant]
  10. CO-TRIMOXAZOLE [Concomitant]
  11. AMPHOTERICIN B [Concomitant]
  12. OMEPRAZOLE [Concomitant]
  13. CIPROFLOXACIN [Concomitant]

REACTIONS (1)
  - TOXIC EPIDERMAL NECROLYSIS [None]
